FAERS Safety Report 5039194-6 (Version None)
Quarter: 2006Q2

REPORT INFORMATION
  Report Type: 
  Country: None (occurrence: None)
  Receive Date: 20060629
  Receipt Date: 20010319
  Transmission Date: 20061013
  Serious: Yes (Other)
  Sender: FDA-Public Use
  Company Number: US-AMGEN-01030828

PATIENT
  Sex: Female
  Weight: 50.45 kg

DRUGS (14)
  1. ENBREL [Suspect]
     Indication: RHEUMATOID ARTHRITIS
     Route: 058
     Dates: start: 20000501
  2. ENBREL [Suspect]
  3. ROFECOXIB [Concomitant]
  4. BENICAR [Concomitant]
  5. CLARITIN [Concomitant]
  6. SIMVASTATIN [Concomitant]
  7. ESTRATEST [Concomitant]
  8. RANITIDINE [Concomitant]
  9. NEXIUM [Concomitant]
  10. FISH OIL [Concomitant]
  11. ASCORBIC ACID [Concomitant]
  12. ASPIRIN [Concomitant]
  13. NORVASC [Concomitant]
  14. LIPITOR [Concomitant]

REACTIONS (7)
  - ANGIOPLASTY [None]
  - BLISTER [None]
  - CHEST PAIN [None]
  - CONDITION AGGRAVATED [None]
  - CORONARY ARTERY DISEASE [None]
  - FATIGUE [None]
  - RHEUMATOID ARTHRITIS [None]
